FAERS Safety Report 11853054 (Version 1)
Quarter: 2015Q4

REPORT INFORMATION
  Report Type: Spontaneous
  Country: US (occurrence: US)
  Receive Date: 20151218
  Receipt Date: 20151218
  Transmission Date: 20160305
  Serious: Yes (Other)
  Sender: FDA-Public Use
  Company Number: US-BAUSCH-BL-2015-029966

PATIENT
  Age: 76 Year
  Sex: Female

DRUGS (1)
  1. XIFAXAN [Suspect]
     Active Substance: RIFAXIMIN
     Indication: OVERGROWTH BACTERIAL
     Route: 065

REACTIONS (4)
  - Drug dose omission [Unknown]
  - Frequent bowel movements [Unknown]
  - Weight decreased [Unknown]
  - Off label use [Recovered/Resolved]
